FAERS Safety Report 9114743 (Version 2)
Quarter: 2013Q1

REPORT INFORMATION
  Report Type: Spontaneous
  Country: US (occurrence: None)
  Receive Date: 20130129
  Receipt Date: 20130206
  Transmission Date: 20140127
  Serious: Yes (Hospitalization, Other)
  Sender: FDA-Public Use
  Company Number: AUR-APL-2013-00888

PATIENT
  Age: 29 Year
  Sex: Female

DRUGS (2)
  1. GABAPENTIN (GABAPENTIN) [Suspect]
     Indication: MOVEMENT DISORDER
     Dosage: (2100 MG, TOTAL )
     Route: 048
  2. BUPROPION (BUPROPION) [Suspect]
     Indication: PRODUCT USED FOR UNKNOWN INDICATION

REACTIONS (12)
  - Overdose [None]
  - Grand mal convulsion [None]
  - Sinus tachycardia [None]
  - Electrocardiogram QT prolonged [None]
  - Cardiogenic shock [None]
  - Mental status changes [None]
  - Metabolic acidosis [None]
  - Hypotension [None]
  - Ventricular hypokinesia [None]
  - Electroencephalogram abnormal [None]
  - Unresponsive to stimuli [None]
  - Sepsis [None]
